FAERS Safety Report 15635633 (Version 2)
Quarter: 2019Q1

REPORT INFORMATION
  Report Type: Spontaneous
  Country: JP (occurrence: JP)
  Receive Date: 20181120
  Receipt Date: 20190204
  Transmission Date: 20190417
  Serious: Yes (Death, Hospitalization, Other)
  Sender: FDA-Public Use
  Company Number: JP-BRISTOL-MYERS SQUIBB COMPANY-BMS-2018-108964

PATIENT
  Age: 69 Year
  Sex: Male
  Weight: 41.5 kg

DRUGS (1)
  1. OPDIVO [Suspect]
     Active Substance: NIVOLUMAB
     Indication: HEAD AND NECK CANCER
     Dosage: 124.5 MG
     Route: 041
     Dates: start: 20170816, end: 20170904

REACTIONS (14)
  - Dehydration [Recovered/Resolved]
  - Hypomagnesaemia [Recovered/Resolved]
  - Malaise [Unknown]
  - Malignant neoplasm progression [Fatal]
  - Hypercalcaemia [Recovered/Resolved]
  - Decreased appetite [Unknown]
  - Hypophosphataemia [Recovered/Resolved]
  - Nausea [Unknown]
  - Dyspnoea [Unknown]
  - Hypokalaemia [Recovered/Resolved]
  - Throat tightness [Unknown]
  - Pyrexia [Recovered/Resolved]
  - Delirium [Unknown]
  - Productive cough [Recovering/Resolving]

NARRATIVE: CASE EVENT DATE: 20170904
